FAERS Safety Report 13683180 (Version 2)
Quarter: 2017Q3

REPORT INFORMATION
  Report Type: Report from Study
  Country: JP (occurrence: JP)
  Receive Date: 20170623
  Receipt Date: 20170811
  Transmission Date: 20171127
  Serious: Yes (Death, Hospitalization)
  Sender: FDA-Public Use
  Company Number: JP-ACTELION-A-CH2017-155505

PATIENT
  Age: 63 Year
  Sex: Female

DRUGS (16)
  1. LOXONIN [Suspect]
     Active Substance: LOXOPROFEN SODIUM
     Indication: PAIN
     Dosage: 30 MG, QD
     Route: 048
     Dates: start: 20170119, end: 20170409
  2. OXYGEN. [Concomitant]
     Active Substance: OXYGEN
  3. METOCLOPRAMIDE. [Concomitant]
     Active Substance: METOCLOPRAMIDE
  4. LUNESTA [Concomitant]
     Active Substance: ESZOPICLONE
  5. TRACLEER [Suspect]
     Active Substance: BOSENTAN
     Indication: SKIN ULCER
     Dosage: 62.5 MG, BID
     Route: 048
     Dates: start: 20170104, end: 20170112
  6. TRACLEER [Suspect]
     Active Substance: BOSENTAN
     Dosage: 62.5 MG, BID
     Route: 048
     Dates: start: 20170217, end: 20170409
  7. CODEINE PHOSPHATE [Concomitant]
     Active Substance: CODEINE PHOSPHATE
  8. TRAMCET [Concomitant]
     Active Substance: ACETAMINOPHEN\TRAMADOL
  9. PROCYLIN [Concomitant]
     Active Substance: BERAPROST SODIUM
  10. BAYASPIRIN [Concomitant]
     Active Substance: ASPIRIN
  11. ZOLPIDEM TARTRATE. [Concomitant]
     Active Substance: ZOLPIDEM TARTRATE
  12. TAKEPRON [Concomitant]
     Active Substance: LANSOPRAZOLE
  13. TRACLEER [Suspect]
     Active Substance: BOSENTAN
     Dosage: 62.5 MG, TID
     Route: 048
     Dates: start: 20170113, end: 2017
  14. DIART [Suspect]
     Active Substance: AZOSEMIDE
     Indication: CARDIAC FAILURE
     Dosage: 60 MG, QD
     Route: 048
     Dates: start: 20161004, end: 20170409
  15. SPIRONOLACTONE. [Suspect]
     Active Substance: SPIRONOLACTONE
     Indication: CARDIAC FAILURE
     Dosage: 25 MG, QD
     Route: 048
     Dates: start: 20170126, end: 20170409
  16. SAMSCA [Suspect]
     Active Substance: TOLVAPTAN
     Indication: CARDIAC FAILURE
     Dosage: 3.75 MG, QD
     Route: 048
     Dates: start: 20170131, end: 20170409

REACTIONS (9)
  - Pain [Not Recovered/Not Resolved]
  - Cardiac failure [Not Recovered/Not Resolved]
  - Hypothyroidism [Not Recovered/Not Resolved]
  - Concomitant disease aggravated [Not Recovered/Not Resolved]
  - Cardiomegaly [Not Recovered/Not Resolved]
  - Renal impairment [Not Recovered/Not Resolved]
  - Pulmonary hypertension [Fatal]
  - Weight increased [Not Recovered/Not Resolved]
  - Blood pressure decreased [Recovered/Resolved]

NARRATIVE: CASE EVENT DATE: 20170119
